FAERS Safety Report 5500821-8 (Version None)
Quarter: 2007Q4

REPORT INFORMATION
  Report Type: 
  Country: None (occurrence: None)
  Receive Date: 20071029
  Receipt Date: 20071025
  Transmission Date: 20080405
  Serious: Yes (Hospitalization)
  Sender: FDA-Public Use
  Company Number: B0488261A

PATIENT
  Age: 78 Year
  Sex: Female

DRUGS (7)
  1. SAWACILLIN [Suspect]
     Indication: HELICOBACTER INFECTION
     Dosage: 750MG TWICE PER DAY
     Route: 048
     Dates: start: 20070710, end: 20070713
  2. RABEPRAZOLE SODIUM [Suspect]
     Indication: HELICOBACTER INFECTION
     Dosage: 10MG SEE DOSAGE TEXT
     Route: 048
     Dates: start: 20070414, end: 20070713
  3. CLARITHROMYCIN [Suspect]
     Indication: HELICOBACTER INFECTION
     Dosage: 200MG TWICE PER DAY
     Route: 048
     Dates: start: 20070710, end: 20070713
  4. MAGMITT [Concomitant]
     Indication: CONSTIPATION
     Route: 048
     Dates: start: 20070604
  5. OSTELUC [Concomitant]
     Route: 048
     Dates: start: 20070605
  6. MARZULENE-S [Concomitant]
     Dosage: .67G THREE TIMES PER DAY
     Route: 048
     Dates: start: 20070605
  7. FAMOTIDINE [Concomitant]
     Dates: start: 20070419

REACTIONS (6)
  - BLOOD CALCIUM INCREASED [None]
  - BLOOD PARATHYROID HORMONE INCREASED [None]
  - DRUG HYPERSENSITIVITY [None]
  - HYPERKALAEMIA [None]
  - HYPERPARATHYROIDISM PRIMARY [None]
  - RENAL IMPAIRMENT [None]
